FAERS Safety Report 8113155-2 (Version None)
Quarter: 2012Q1

REPORT INFORMATION
  Report Type: 
  Country: None (occurrence: None)
  Receive Date: 20120203
  Receipt Date: 20120126
  Transmission Date: 20120608
  Serious: Yes (Other)
  Sender: FDA-Public Use
  Company Number: GB-ABBOTT-11P-167-0852890-00

PATIENT
  Sex: Male
  Weight: 70 kg

DRUGS (13)
  1. RAMIPRIL [Concomitant]
     Indication: HYPERTENSION
     Route: 048
  2. QUININE SULFATE [Concomitant]
     Indication: PRODUCT USED FOR UNKNOWN INDICATION
     Route: 065
     Dates: start: 20100709
  3. ACETAMINOPHEN [Concomitant]
     Indication: PRODUCT USED FOR UNKNOWN INDICATION
     Route: 048
     Dates: start: 20100709
  4. BETNOVATE [Concomitant]
     Indication: PRODUCT USED FOR UNKNOWN INDICATION
     Dates: start: 20110328
  5. DOVOBET [Concomitant]
     Indication: PRODUCT USED FOR UNKNOWN INDICATION
     Dates: start: 20100709
  6. BENDROFLUAZIDE [Concomitant]
     Indication: HYPERTENSION
     Route: 048
  7. HUMIRA [Suspect]
     Indication: PSORIASIS
     Route: 058
     Dates: start: 20100709, end: 20110323
  8. ACITRETIN [Concomitant]
     Indication: PSORIASIS
     Route: 048
     Dates: start: 20110302
  9. TRIMOVATE [Concomitant]
     Indication: PRODUCT USED FOR UNKNOWN INDICATION
     Dates: start: 20110509
  10. ACITRETIN [Concomitant]
     Indication: PRODUCT USED FOR UNKNOWN INDICATION
     Dates: start: 20110301
  11. COAL TAR [Concomitant]
     Indication: PRODUCT USED FOR UNKNOWN INDICATION
     Dates: start: 20110620
  12. ATORVASTATIN [Concomitant]
     Indication: PRODUCT USED FOR UNKNOWN INDICATION
     Dates: start: 20110509
  13. EPADERM [Concomitant]
     Indication: PRODUCT USED FOR UNKNOWN INDICATION
     Dates: start: 20101117

REACTIONS (2)
  - URINARY INCONTINENCE [None]
  - PROSTATE CANCER [None]
